FAERS Safety Report 11020545 (Version 2)
Quarter: 2015Q2

REPORT INFORMATION
  Report Type: Spontaneous
  Country: DE (occurrence: DE)
  Receive Date: 20150413
  Receipt Date: 20150608
  Transmission Date: 20150821
  Serious: Yes (Hospitalization, Disabling, Other)
  Sender: FDA-Public Use
  Company Number: DE-ABBVIE-15K-062-1373201-00

PATIENT
  Age: 50 Year
  Sex: Male
  Weight: 69 kg

DRUGS (4)
  1. HUMIRA [Suspect]
     Active Substance: ADALIMUMAB
     Indication: CROHN^S DISEASE
     Route: 058
     Dates: start: 20150113, end: 20150113
  2. HUMIRA [Suspect]
     Active Substance: ADALIMUMAB
     Indication: COLITIS
     Route: 058
     Dates: start: 20150127, end: 20150127
  3. HUMIRA [Suspect]
     Active Substance: ADALIMUMAB
     Indication: ARTHROPATHY
  4. PENTASA [Concomitant]
     Active Substance: MESALAMINE
     Indication: PRODUCT USED FOR UNKNOWN INDICATION
     Dosage: LOCAL
     Dates: start: 201206, end: 201503

REACTIONS (7)
  - Fatigue [Unknown]
  - Immunodeficiency [Unknown]
  - General physical health deterioration [Unknown]
  - Laryngeal cancer metastatic [Recovered/Resolved with Sequelae]
  - Pyrexia [Unknown]
  - Weight decreased [Unknown]
  - Hypopharyngeal cancer [Recovered/Resolved with Sequelae]

NARRATIVE: CASE EVENT DATE: 201502
